FAERS Safety Report 5963801-4 (Version None)
Quarter: 2008Q4

REPORT INFORMATION
  Report Type: 
  Country: None (occurrence: None)
  Receive Date: 20081121
  Receipt Date: 20081121
  Transmission Date: 20090506
  Serious: Yes (Life-Threatening, Hospitalization)
  Sender: FDA-Public Use
  Company Number: None

PATIENT
  Age: 66 Year
  Sex: Male
  Weight: 85 kg

DRUGS (7)
  1. GLIPIZIDE [Suspect]
  2. METFORMIN 1000 MG BID [Suspect]
  3. ASPIRIN [Concomitant]
  4. LAMIVUDINE AND ZIDOVUDINE [Concomitant]
  5. LIPITOR [Concomitant]
  6. SUSTIVA [Concomitant]
  7. LISINOPRIL [Concomitant]

REACTIONS (8)
  - ASTHENIA [None]
  - BLOOD GLUCOSE DECREASED [None]
  - DIZZINESS [None]
  - FALL [None]
  - HYPERHIDROSIS [None]
  - HYPOPHAGIA [None]
  - TREMOR [None]
  - VISION BLURRED [None]
